FAERS Safety Report 20097453 (Version 3)
Quarter: 2021Q4

REPORT INFORMATION
  Report Type: Spontaneous
  Country: TH (occurrence: TH)
  Receive Date: 20211122
  Receipt Date: 20211215
  Transmission Date: 20220303
  Serious: Yes (Hospitalization, Other)
  Sender: FDA-Public Use
  Company Number: TH-GLAXOSMITHKLINE-TH2021GSK234708

PATIENT
  Age: 20 Year
  Sex: Female

DRUGS (5)
  1. WELLBUTRIN XL [Interacting]
     Active Substance: BUPROPION HYDROCHLORIDE
     Indication: Major depression
     Dosage: 150 MG
  2. LAMICTAL [Interacting]
     Active Substance: LAMOTRIGINE
     Indication: Major depression
     Dosage: 100 MG
  3. VORTIOXETINE [Interacting]
     Active Substance: VORTIOXETINE
     Indication: Major depression
     Dosage: UNK
  4. LURASIDONE [Interacting]
     Active Substance: LURASIDONE
     Indication: Major depression
     Dosage: UNK
  5. ESCITALOPRAM [Interacting]
     Active Substance: ESCITALOPRAM OXALATE
     Indication: Major depression
     Dosage: UNK

REACTIONS (16)
  - Serotonin syndrome [Recovered/Resolved]
  - Encephalopathy [Recovered/Resolved]
  - Overdose [Recovered/Resolved]
  - Loss of consciousness [Recovered/Resolved]
  - Agitation [Recovered/Resolved]
  - Somnolence [Recovered/Resolved]
  - Hyperreflexia [Recovered/Resolved]
  - Clonus [Recovered/Resolved]
  - Dry skin [Recovered/Resolved]
  - Flushing [Recovered/Resolved]
  - Myoclonus [Recovered/Resolved]
  - Pneumonia aspiration [Recovered/Resolved]
  - Rhabdomyolysis [Recovered/Resolved]
  - Electrocardiogram QT prolonged [Recovered/Resolved]
  - Suicide attempt [Recovered/Resolved]
  - Drug interaction [Recovered/Resolved]

NARRATIVE: CASE EVENT DATE: 20201117
